FAERS Safety Report 17680239 (Version 4)
Quarter: 2020Q3

REPORT INFORMATION
  Report Type: Report from Study
  Country: GB (occurrence: GB)
  Receive Date: 20200417
  Receipt Date: 20200723
  Transmission Date: 20201102
  Serious: Yes (Other)
  Sender: FDA-Public Use
  Company Number: NVSC2020GB103890

PATIENT
  Sex: Female

DRUGS (2)
  1. METOJECT [Suspect]
     Active Substance: METHOTREXATE SODIUM
     Indication: PRODUCT USED FOR UNKNOWN INDICATION
     Dosage: 17.5 MG, QW
     Route: 065
  2. ERELZI [Suspect]
     Active Substance: ETANERCEPT-SZZS
     Indication: RHEUMATOID ARTHRITIS
     Dosage: 50 MG, QW
     Route: 058

REACTIONS (7)
  - Accidental exposure to product [Unknown]
  - Myalgia [Unknown]
  - Device malfunction [Unknown]
  - Rash erythematous [Unknown]
  - Skin cancer [Unknown]
  - Pain in extremity [Unknown]
  - Neuralgia [Unknown]
